FAERS Safety Report 6518733-X (Version None)
Quarter: 2009Q4

REPORT INFORMATION
  Report Type: 
  Country: None (occurrence: None)
  Receive Date: 20091228
  Receipt Date: 20091223
  Transmission Date: 20100525
  Serious: Yes (Death, Hospitalization)
  Sender: FDA-Public Use
  Company Number: PHEH2009US17920

PATIENT
  Sex: Female

DRUGS (3)
  1. EXJADE [Suspect]
     Indication: CHRONIC MYELOID LEUKAEMIA
     Dosage: 1250 MG DAILY
     Route: 048
     Dates: start: 20081108, end: 20091116
  2. EXJADE [Suspect]
     Indication: IRON OVERLOAD
  3. CHEMOTHERAPEUTICS NOS [Suspect]
     Indication: CHRONIC MYELOID LEUKAEMIA
     Dosage: UNK, UNK
     Route: 065

REACTIONS (4)
  - ABSCESS [None]
  - FULL BLOOD COUNT DECREASED [None]
  - ORAL INFECTION [None]
  - SEPSIS [None]
